FAERS Safety Report 5285755-9 (Version None)
Quarter: 2007Q1

REPORT INFORMATION
  Report Type: 
  Country: None (occurrence: None)
  Receive Date: 20070126
  Receipt Date: 20061128
  Transmission Date: 20070707
  Serious: No
  Sender: FDA-Public Use
  Company Number: CLOF-10399

PATIENT
  Age: 27 Year
  Sex: Male
  Weight: 107 kg

DRUGS (7)
  1. CLOLAR [Suspect]
     Indication: ACUTE LYMPHOCYTIC LEUKAEMIA
     Dosage: 40 MG/M2 QD X 5 IV
     Route: 042
     Dates: start: 20061125, end: 20061127
  2. CYTARABINE [Suspect]
     Indication: ACUTE LYMPHOCYTIC LEUKAEMIA
     Dosage: 1000 MG/M2 QD IV
     Route: 042
     Dates: start: 20060101
  3. CEFEPIME [Concomitant]
  4. ALLOPURINOL [Concomitant]
  5. KYTRIL [Concomitant]
  6. DECADRON [Concomitant]
  7. DOCUSATE [Concomitant]

REACTIONS (2)
  - BLOOD CREATININE INCREASED [None]
  - TUMOUR LYSIS SYNDROME [None]
